FAERS Safety Report 6124299-9 (Version None)
Quarter: 2009Q1

REPORT INFORMATION
  Report Type: 
  Country: None (occurrence: None)
  Receive Date: 20090319
  Receipt Date: 20090309
  Transmission Date: 20090719
  Serious: Yes (Hospitalization)
  Sender: FDA-Public Use
  Company Number: FR-BAXTER-2009BH003841

PATIENT
  Age: 55 Year
  Sex: Female

DRUGS (12)
  1. ENDOXAN BAXTER [Suspect]
     Indication: NON-HODGKIN'S LYMPHOMA
     Route: 042
     Dates: start: 20080229, end: 20080229
  2. MABTHERA [Suspect]
     Indication: NON-HODGKIN'S LYMPHOMA
     Route: 042
     Dates: start: 20080228, end: 20080228
  3. DOXORUBICIN HCL [Suspect]
     Indication: NON-HODGKIN'S LYMPHOMA
     Route: 042
     Dates: start: 20080229, end: 20080229
  4. VINCRISTINE SULFATE [Suspect]
     Indication: NON-HODGKIN'S LYMPHOMA
     Route: 042
     Dates: start: 20080229, end: 20080229
  5. SOLU-MEDROL [Concomitant]
     Indication: NON-HODGKIN'S LYMPHOMA
     Dates: start: 20090228, end: 20090228
  6. LOPERAMIDE HCL [Concomitant]
     Indication: DIARRHOEA HAEMORRHAGIC
     Route: 048
     Dates: start: 20080303
  7. PRIMPERAN [Concomitant]
     Indication: VOMITING
     Dates: start: 20080303
  8. ESOMEPRAZOLE [Concomitant]
     Indication: GASTRIC DISORDER
     Route: 048
     Dates: start: 20080303
  9. SPASFON [Concomitant]
     Indication: GASTROINTESTINAL PAIN
     Route: 048
     Dates: start: 20080303
  10. LEVOTHYROXINE [Concomitant]
     Indication: HYPOTHYROIDISM
     Route: 048
  11. KALEORID [Concomitant]
     Indication: HYPOKALAEMIA
     Route: 048
  12. AMOXICILLIN [Concomitant]
     Indication: ABSCESS JAW
     Dates: start: 20080329, end: 20080303

REACTIONS (7)
  - DYSPHAGIA [None]
  - FEBRILE NEUTROPENIA [None]
  - LEUKOPENIA [None]
  - NORMOCHROMIC NORMOCYTIC ANAEMIA [None]
  - PLEURAL EFFUSION [None]
  - THROMBOCYTOPENIA [None]
  - TOOTH ABSCESS [None]
